FAERS Safety Report 17840520 (Version 1)
Quarter: 2020Q2

REPORT INFORMATION
  Report Type: Spontaneous
  Country: FR (occurrence: FR)
  Receive Date: 20200529
  Receipt Date: 20200529
  Transmission Date: 20200714
  Serious: Yes (Hospitalization)
  Sender: FDA-Public Use
  Company Number: FR-AMGEN-FRANI2020083177

PATIENT
  Age: 27 Year
  Sex: Male
  Weight: 72 kg

DRUGS (8)
  1. CHOLURSO [Concomitant]
     Active Substance: URSODIOL
     Indication: CHOLANGITIS SCLEROSING
     Dosage: 1000 MILLIGRAM, QD
     Route: 048
     Dates: start: 20180417
  2. ADALIMUMAB [Suspect]
     Active Substance: ADALIMUMAB
     Dosage: 40 MILLIGRAM, Q2WK
     Route: 058
     Dates: start: 20170206, end: 20181113
  3. ADALIMUMAB [Suspect]
     Active Substance: ADALIMUMAB
     Dosage: 40 MILLIGRAM, QWK
     Route: 058
     Dates: start: 20181113, end: 20190409
  4. ADALIMUMAB [Suspect]
     Active Substance: ADALIMUMAB
     Indication: COLITIS ULCERATIVE
     Dosage: 80 MILLIGRAM
     Route: 058
     Dates: start: 20170123, end: 20170123
  5. METEOSPASMYL [ALVERINE CITRATE;DL-METHIONINE] [Concomitant]
     Active Substance: ALVERINE CITRATE\RACEMETHIONINE
     Indication: FLATULENCE
     Dates: start: 20170919, end: 20171019
  6. TRIMEBUTINE [Concomitant]
     Active Substance: TRIMEBUTINE
     Indication: CYTOMEGALOVIRUS TEST
     Dosage: 200 MILLIGRAM
     Route: 048
     Dates: start: 20180109
  7. DAFALGAN CODEINE [Concomitant]
     Active Substance: ACETAMINOPHEN\CODEINE PHOSPHATE
     Indication: PAIN
     Dosage: 1500 MILLIGRAM, QD
     Route: 048
     Dates: start: 20170508, end: 20170706
  8. FIVASA [MESALAZINE] [Concomitant]
     Active Substance: MESALAMINE
     Indication: PROPHYLAXIS
     Route: 048
     Dates: start: 20170711, end: 20170811

REACTIONS (3)
  - Influenza [Recovered/Resolved]
  - Immunodeficiency [Recovered/Resolved]
  - Gastroenteritis [Recovered/Resolved]

NARRATIVE: CASE EVENT DATE: 20190615
